FAERS Safety Report 23804184 (Version 1)
Quarter: 2024Q2

REPORT INFORMATION
  Report Type: Spontaneous
  Country: US (occurrence: US)
  Receive Date: 20240501
  Receipt Date: 20240501
  Transmission Date: 20240715
  Serious: Yes (Hospitalization)
  Sender: FDA-Public Use
  Company Number: US-GE HEALTHCARE-2024CSU004274

PATIENT
  Age: 65 Year
  Sex: Female
  Weight: 80.8 kg

DRUGS (1)
  1. OMNIPAQUE [Suspect]
     Active Substance: IOHEXOL
     Indication: Catheterisation cardiac
     Dosage: 50 ML, TOTAL
     Route: 065
     Dates: start: 20240419, end: 20240419

REACTIONS (1)
  - Visual impairment [Recovered/Resolved]

NARRATIVE: CASE EVENT DATE: 20240419
